FAERS Safety Report 24948620 (Version 2)
Quarter: 2025Q1

REPORT INFORMATION
  Report Type: Report from Study
  Country: US (occurrence: US)
  Receive Date: 20250210
  Receipt Date: 20250303
  Transmission Date: 20250409
  Serious: Yes (Hospitalization, Other)
  Sender: ALEXION PHARMACEUTICALS
  Company Number: US-AstraZeneca-CH-00799089A

PATIENT

DRUGS (2)
  1. EPLONTERSEN SODIUM [Suspect]
     Active Substance: EPLONTERSEN SODIUM
     Indication: Hereditary ATTR amyloid cardiomyopathy
     Route: 065
  2. VYNDAMAX [Concomitant]
     Active Substance: TAFAMIDIS
     Route: 065

REACTIONS (2)
  - Cardiac failure [Recovering/Resolving]
  - Drug ineffective [Unknown]
